FAERS Safety Report 5310608-7 (Version None)
Quarter: 2007Q1

REPORT INFORMATION
  Report Type: 
  Country: None (occurrence: None)
  Receive Date: 20070201
  Receipt Date: 20061115
  Transmission Date: 20070707
  Serious: No
  Sender: FDA-Public Use
  Company Number: 258585

PATIENT
  Age: 51 Year
  Sex: Male
  Weight: 147.4 kg

DRUGS (4)
  1. LEVEMIR [Suspect]
     Indication: INSULIN-REQUIRING TYPE II DIABETES MELLITUS
     Dosage: SUBCUTANEOUS
     Route: 058
     Dates: start: 20060801, end: 20061101
  2. GLIPIZIDE [Concomitant]
  3. ZOCOR [Concomitant]
  4. QUINARETIC (HYDROCHLOROTHIAZIDE, QUINAPRIL HYDROCHLORIDE) [Concomitant]

REACTIONS (1)
  - INJECTION SITE RASH [None]
